FAERS Safety Report 20922998 (Version 12)
Quarter: 2024Q1

REPORT INFORMATION
  Report Type: Spontaneous
  Country: US (occurrence: US)
  Receive Date: 20220607
  Receipt Date: 20240306
  Transmission Date: 20240410
  Serious: Yes (Other)
  Sender: FDA-Public Use
  Company Number: US-BRISTOL-MYERS SQUIBB COMPANY-2022-047896

PATIENT
  Age: 72 Year
  Sex: Female

DRUGS (8)
  1. REVLIMID [Suspect]
     Active Substance: LENALIDOMIDE
     Indication: Plasma cell myeloma
     Route: 048
     Dates: start: 202106
  2. REVLIMID [Suspect]
     Active Substance: LENALIDOMIDE
     Indication: Plasma cell myeloma in remission
     Route: 048
     Dates: start: 202205
  3. REVLIMID [Suspect]
     Active Substance: LENALIDOMIDE
     Dosage: BID
     Route: 048
     Dates: start: 20210629
  4. REVLIMID [Suspect]
     Active Substance: LENALIDOMIDE
     Dosage: 21 DAYS ON AND 7 DAYS OFF
     Route: 048
     Dates: start: 202106
  5. REVLIMID [Suspect]
     Active Substance: LENALIDOMIDE
     Route: 048
     Dates: start: 202107
  6. REVLIMID [Suspect]
     Active Substance: LENALIDOMIDE
     Dosage: FREQUENCY OTHER
     Route: 048
  7. REVLIMID [Suspect]
     Active Substance: LENALIDOMIDE
     Dosage: FREQUENCY OTHER, QD FOR 21 DAYS ON 7 DAYS OFF
     Route: 048
  8. REVLIMID [Suspect]
     Active Substance: LENALIDOMIDE
     Dosage: QD
     Route: 048

REACTIONS (18)
  - Neuropathy peripheral [Unknown]
  - Dysgeusia [Unknown]
  - Nausea [Unknown]
  - Fluid retention [Unknown]
  - Abdominal discomfort [Unknown]
  - Erythema [Unknown]
  - Neutrophil count decreased [Unknown]
  - Insomnia [Unknown]
  - Platelet count decreased [Unknown]
  - Fatigue [Unknown]
  - Taste disorder [Unknown]
  - Constipation [Unknown]
  - Diarrhoea [Unknown]
  - Balance disorder [Unknown]
  - Bone loss [Unknown]
  - Poor quality sleep [Unknown]
  - Abdominal pain [Unknown]
  - Abnormal faeces [Unknown]

NARRATIVE: CASE EVENT DATE: 20220502
